FAERS Safety Report 23643624 (Version 2)
Quarter: 2024Q2

REPORT INFORMATION
  Report Type: Report from Study
  Country: US (occurrence: US)
  Receive Date: 20240318
  Receipt Date: 20240623
  Transmission Date: 20240715
  Serious: Yes (Hospitalization, Other)
  Sender: FDA-Public Use
  Company Number: US-ABBVIE-5442322

PATIENT
  Sex: Female

DRUGS (3)
  1. SKYRIZI [Suspect]
     Active Substance: RISANKIZUMAB-RZAA
     Indication: Psoriasis
     Dosage: END DATE JAN 2023
     Route: 058
     Dates: start: 20230104
  2. SKYRIZI [Suspect]
     Active Substance: RISANKIZUMAB-RZAA
     Route: 058
     Dates: start: 20230118
  3. ELIQUIS [Concomitant]
     Active Substance: APIXABAN
     Indication: Product used for unknown indication
     Dosage: 2.5MG TWICE DAILY

REACTIONS (9)
  - Fall [Unknown]
  - Urinary tract infection [Recovered/Resolved]
  - Joint injury [Unknown]
  - Humerus fracture [Recovering/Resolving]
  - Fall [Recovered/Resolved]
  - Head injury [Unknown]
  - Wound haemorrhage [Unknown]
  - Arthropathy [Unknown]
  - Skin disorder [Unknown]

NARRATIVE: CASE EVENT DATE: 20230101
